FAERS Safety Report 6955701-8 (Version None)
Quarter: 2010Q3

REPORT INFORMATION
  Report Type: 
  Country: None (occurrence: None)
  Receive Date: 20100826
  Receipt Date: 20100826
  Transmission Date: 20110219
  Serious: No
  Sender: FDA-Public Use
  Company Number: None

PATIENT
  Age: 22 Year
  Sex: Male

DRUGS (1)
  1. ACCUTANE [Suspect]
     Dosage: AS DIRECTED USED FOR 6 MONTHS

REACTIONS (2)
  - EAR PAIN [None]
  - HEADACHE [None]
